FAERS Safety Report 12219168 (Version 1)
Quarter: 2016Q1

REPORT INFORMATION
  Report Type: Spontaneous
  Country: US (occurrence: US)
  Receive Date: 20160329
  Receipt Date: 20160329
  Transmission Date: 20160526
  Serious: No
  Sender: FDA-Public Use
  Company Number: US-SA-2015SA046606

PATIENT
  Age: 7 Year
  Sex: Male

DRUGS (1)
  1. ALLEGRA [Suspect]
     Active Substance: FEXOFENADINE HYDROCHLORIDE
     Indication: HYPERSENSITIVITY
     Dosage: HAS USED PRODUCT FOR 6 MONTH DOSE:1 TEASPOON(S)
     Route: 048

REACTIONS (1)
  - Dizziness [Unknown]
